FAERS Safety Report 7736987-9 (Version None)
Quarter: 2011Q3

REPORT INFORMATION
  Report Type: 
  Country: None (occurrence: None)
  Receive Date: 20110908
  Receipt Date: 20110826
  Transmission Date: 20111222
  Serious: Yes (Hospitalization)
  Sender: FDA-Public Use
  Company Number: US-ELI_LILLY_AND_COMPANY-US201010005145

PATIENT
  Sex: Female

DRUGS (11)
  1. FORTEO [Suspect]
     Indication: OSTEOPOROSIS
     Dosage: 20 UG, DAILY (1/D)
     Route: 058
     Dates: start: 20100901
  2. PREMARIN [Concomitant]
     Indication: HOT FLUSH
     Dosage: 0.03 MG, QD
     Route: 065
  3. SIMVASTATIN [Concomitant]
     Indication: BLOOD CHOLESTEROL
     Dosage: 40 MG, QD
     Route: 065
  4. FORTEO [Suspect]
     Dosage: 20 UG, QD
     Route: 058
  5. PREDNISONE [Concomitant]
     Dosage: 10 MG, UNK
  6. ASPIRIN [Concomitant]
     Dosage: 81 MG, QD
     Route: 065
  7. BLACK COHOSH [Concomitant]
     Indication: HOT FLUSH
     Dosage: 540 MG, QD
     Route: 065
  8. GABAPENTIN [Concomitant]
     Dosage: 300 MG, UNK
     Route: 065
  9. LEVAQUIN [Concomitant]
     Dosage: 750 MG, UNK
     Route: 065
  10. METFORMIN HCL [Concomitant]
     Indication: DIABETES MELLITUS
     Dosage: 250 MG, QD
     Route: 065
  11. VITAMIN D [Concomitant]
     Dosage: 50000 IU, 2/M

REACTIONS (7)
  - EYE INFECTION [None]
  - THYROID DISORDER [None]
  - BASEDOW'S DISEASE [None]
  - SINUSITIS [None]
  - INJECTION SITE REACTION [None]
  - CYST [None]
  - BLOOD POTASSIUM DECREASED [None]
